APPROVED DRUG PRODUCT: TOBRADEX ST
Active Ingredient: DEXAMETHASONE; TOBRAMYCIN
Strength: 0.05%;0.3%
Dosage Form/Route: SUSPENSION/DROPS;OPHTHALMIC
Application: N050818 | Product #001
Applicant: HARROW EYE LLC
Approved: Feb 13, 2009 | RLD: Yes | RS: Yes | Type: RX

PATENTS:
Patent 8101582 | Expires: Dec 19, 2027
Patent 8450287 | Expires: Dec 19, 2027
Patent 7795316 | Expires: Aug 3, 2028